FAERS Safety Report 10860654 (Version 3)
Quarter: 2015Q2

REPORT INFORMATION
  Report Type: Spontaneous
  Country: IT (occurrence: IT)
  Receive Date: 20150224
  Receipt Date: 20150611
  Transmission Date: 20150821
  Serious: Yes (Hospitalization)
  Sender: FDA-Public Use
  Company Number: IT-ROCHE-1543147

PATIENT
  Age: 66 Year
  Sex: Male

DRUGS (2)
  1. LEVACT (ITALY) [Suspect]
     Active Substance: BENDAMUSTINE HYDROCHLORIDE
     Indication: CHRONIC LYMPHOCYTIC LEUKAEMIA
     Dosage: ^2.5 MG/ML POWDER FOR CONCENTRATE FOR SOLUTION^
     Route: 042
     Dates: start: 20141223, end: 20141224
  2. MABTHERA [Suspect]
     Active Substance: RITUXIMAB
     Indication: CHRONIC LYMPHOCYTIC LEUKAEMIA
     Dosage: 1 X 500 MG 50 ML AMPOULE
     Route: 042
     Dates: start: 20141229, end: 20141229

REACTIONS (1)
  - Syncope [Recovered/Resolved]

NARRATIVE: CASE EVENT DATE: 20150102
